FAERS Safety Report 17105552 (Version 2)
Quarter: 2019Q4

REPORT INFORMATION
  Report Type: Spontaneous
  Country: JP (occurrence: JP)
  Receive Date: 20191203
  Receipt Date: 20191204
  Transmission Date: 20200122
  Serious: Yes (Other)
  Sender: FDA-Public Use
  Company Number: JP-PFIZER INC-2019512897

PATIENT
  Age: 23 Year
  Sex: Female

DRUGS (3)
  1. ROZEREM [Concomitant]
     Active Substance: RAMELTEON
  2. EFFEXOR [Suspect]
     Active Substance: VENLAFAXINE HYDROCHLORIDE
     Dosage: UNK, 1X/DAY
     Route: 048
  3. KANZOTO [Interacting]
     Active Substance: HERBALS
     Dosage: 9 G, DAILY

REACTIONS (4)
  - Peripheral swelling [Recovered/Resolved]
  - Loss of consciousness [Recovered/Resolved]
  - Drug interaction [Unknown]
  - Tremor [Recovered/Resolved]
